FAERS Safety Report 15171020 (Version 2)
Quarter: 2018Q3

REPORT INFORMATION
  Report Type: Spontaneous
  Country: FR (occurrence: FR)
  Receive Date: 20180720
  Receipt Date: 20180802
  Transmission Date: 20181010
  Serious: Yes (Other)
  Sender: FDA-Public Use
  Company Number: PHHY2018FR049797

PATIENT
  Age: 62 Year
  Sex: Female

DRUGS (1)
  1. AMOXICILLIN. [Suspect]
     Active Substance: AMOXICILLIN
     Indication: TOOTH DISORDER
     Dosage: UNK
     Route: 048

REACTIONS (4)
  - Meningitis aseptic [Recovered/Resolved]
  - Pyrexia [Unknown]
  - Vomiting [Unknown]
  - Headache [Unknown]
